FAERS Safety Report 15117030 (Version 2)
Quarter: 2018Q3

REPORT INFORMATION
  Report Type: Report from Study
  Country: US (occurrence: US)
  Receive Date: 20180706
  Receipt Date: 20180809
  Transmission Date: 20181010
  Serious: Yes (Hospitalization)
  Sender: FDA-Public Use
  Company Number: US-JNJFOC-20180607033

PATIENT
  Age: 86 Year
  Sex: Male

DRUGS (1)
  1. IMBRUVICA [Suspect]
     Active Substance: IBRUTINIB
     Indication: CHRONIC LYMPHOCYTIC LEUKAEMIA
     Route: 048
     Dates: start: 20180509, end: 2018

REACTIONS (7)
  - Asthenia [Unknown]
  - Haemorrhage [Not Recovered/Not Resolved]
  - Weight decreased [Unknown]
  - Complication associated with device [Unknown]
  - Cardiac disorder [Not Recovered/Not Resolved]
  - Thyroid hormones decreased [Unknown]
  - Cardiac failure congestive [Not Recovered/Not Resolved]

NARRATIVE: CASE EVENT DATE: 20180531
